FAERS Safety Report 4641622-2 (Version None)
Quarter: 2005Q2

REPORT INFORMATION
  Report Type: 
  Country: None (occurrence: None)
  Receive Date: 20050420
  Receipt Date: 20050405
  Transmission Date: 20051028
  Serious: Yes (Hospitalization)
  Sender: FDA-Public Use
  Company Number: WAES 0504CAN00057

PATIENT
  Sex: Female

DRUGS (7)
  1. INDOCIN [Suspect]
     Indication: PAIN MANAGEMENT
     Dosage: SEE IMAGE
  2. MORPHINE [Suspect]
     Indication: PAIN MANAGEMENT
     Dosage: 10 MG/PRN PO
     Route: 048
  3. CIPROFLOXACIN [Concomitant]
  4. DEXAMETHASONE [Concomitant]
  5. FENTANYL [Concomitant]
  6. LORAZEPAM [Concomitant]
  7. METOCLOPRAMIDE [Concomitant]

REACTIONS (1)
  - BACTERAEMIA [None]
